FAERS Safety Report 11303388 (Version 1)
Quarter: 2015Q3

REPORT INFORMATION
  Report Type: Spontaneous
  Country: US (occurrence: US)
  Receive Date: 20150723
  Receipt Date: 20150723
  Transmission Date: 20151125
  Serious: No
  Sender: FDA-Public Use
  Company Number: US-JNJFOC-20141109551

PATIENT
  Age: 9 Year
  Sex: Female

DRUGS (2)
  1. ZYRTEC [Suspect]
     Active Substance: CETIRIZINE HYDROCHLORIDE
     Route: 048
  2. ZYRTEC [Suspect]
     Active Substance: CETIRIZINE HYDROCHLORIDE
     Indication: MULTIPLE ALLERGIES
     Dosage: DAILY FOR UNSPECIFIED AMOUNT OF DAYS
     Route: 048
     Dates: end: 20141109

REACTIONS (6)
  - Blister [Recovering/Resolving]
  - Eye pain [Recovering/Resolving]
  - Eye pruritus [Recovering/Resolving]
  - Pruritus generalised [Recovering/Resolving]
  - Eye swelling [Recovering/Resolving]
  - Sinus headache [Recovering/Resolving]
